FAERS Safety Report 11079063 (Version 1)
Quarter: 2015Q2

REPORT INFORMATION
  Report Type: Spontaneous
  Country: US (occurrence: US)
  Receive Date: 20150430
  Receipt Date: 20150430
  Transmission Date: 20150821
  Serious: Yes (Other)
  Sender: FDA-Public Use
  Company Number: US-LUNDBECK-DKLU1111803

PATIENT
  Sex: Female

DRUGS (5)
  1. SABRIL [Suspect]
     Active Substance: VIGABATRIN
     Indication: BRAIN MALFORMATION
  2. VIMPAT [Concomitant]
     Active Substance: LACOSAMIDE
     Indication: PRODUCT USED FOR UNKNOWN INDICATION
  3. DEPAKOTE [Concomitant]
     Active Substance: DIVALPROEX SODIUM
     Indication: PRODUCT USED FOR UNKNOWN INDICATION
  4. SABRIL [Suspect]
     Active Substance: VIGABATRIN
     Indication: EPILEPSY
     Route: 048
     Dates: start: 20150223
  5. KEPPRA [Concomitant]
     Active Substance: LEVETIRACETAM
     Indication: PRODUCT USED FOR UNKNOWN INDICATION

REACTIONS (2)
  - Drug withdrawal convulsions [Unknown]
  - Drug dose omission [Unknown]
